FAERS Safety Report 9264213 (Version 1)
Quarter: 2013Q2

REPORT INFORMATION
  Report Type: Spontaneous
  Country: GB (occurrence: GB)
  Receive Date: 20130430
  Receipt Date: 20130430
  Transmission Date: 20140414
  Serious: Yes (Hospitalization)
  Sender: FDA-Public Use
  Company Number: GB-B.I. PHARMACEUTICALS,INC./RIDGEFIELD-2013-UK-00940UK

PATIENT
  Sex: Male

DRUGS (2)
  1. PRADAXA [Suspect]
     Indication: ATRIAL FIBRILLATION
  2. ASPIRIN [Concomitant]

REACTIONS (3)
  - Renal failure acute [Recovered/Resolved]
  - Headache [Recovered/Resolved]
  - Subdural haematoma [Recovered/Resolved]
